FAERS Safety Report 5715256-2 (Version None)
Quarter: 2008Q2

REPORT INFORMATION
  Report Type: 
  Country: None (occurrence: None)
  Receive Date: 20080423
  Receipt Date: 20080417
  Transmission Date: 20081010
  Serious: Yes (Other)
  Sender: FDA-Public Use
  Company Number: US-PFIZER INC-2008019292

PATIENT
  Age: 78 Year
  Sex: Female
  Weight: 66.7 kg

DRUGS (1)
  1. NORVASC [Suspect]
     Route: 048

REACTIONS (5)
  - BLOOD PRESSURE INADEQUATELY CONTROLLED [None]
  - CONFUSIONAL STATE [None]
  - DIZZINESS [None]
  - PAPILLOEDEMA [None]
  - VISION BLURRED [None]
